FAERS Safety Report 8563475-2 (Version None)
Quarter: 2012Q3

REPORT INFORMATION
  Report Type: 
  Country: None (occurrence: None)
  Receive Date: 20120802
  Receipt Date: 20120724
  Transmission Date: 20120928
  Serious: Yes (Hospitalization)
  Sender: FDA-Public Use
  Company Number: NL-TEVA-351493ISR

PATIENT
  Sex: Male

DRUGS (5)
  1. PEMETREXED [Suspect]
     Indication: MESOTHELIOMA MALIGNANT
     Dates: start: 20120625
  2. OMEPRAZOL CAPSULE MGA 40MG [Concomitant]
     Dosage: 40 MILLIGRAM;
     Dates: start: 20110101
  3. FOLIUMZUUR TABLET 0,5MG [Concomitant]
     Dosage: .5 MILLIGRAM;
     Dates: start: 20120611
  4. HYDROXOCOBALAMINE INJVLST 500UG/ML [Concomitant]
     Dosage: TIMES PER 2 ML
     Dates: start: 20120611
  5. CISPLATIN [Suspect]
     Indication: MESOTHELIOMA MALIGNANT
     Dates: start: 20120625

REACTIONS (1)
  - PULMONARY TOXICITY [None]
